FAERS Safety Report 9772270 (Version 1)
Quarter: 2013Q4

REPORT INFORMATION
  Report Type: Spontaneous
  Country: JP (occurrence: JP)
  Receive Date: 20131219
  Receipt Date: 20131219
  Transmission Date: 20140711
  Serious: Yes (Other)
  Sender: FDA-Public Use
  Company Number: JP-ASTELLAS-2013JP013933

PATIENT
  Age: 43 Year
  Sex: Male

DRUGS (4)
  1. PROGRAF [Suspect]
     Indication: MYASTHENIA GRAVIS
     Dosage: 4.5 MG, UNKNOWN/D
     Route: 048
     Dates: start: 200606, end: 2009
  2. PROGRAF [Suspect]
     Dosage: 3 MG, UNKNOWN/D
     Route: 048
     Dates: start: 200902, end: 2009
  3. PREDONINE /00016201/ [Suspect]
     Indication: MYASTHENIA GRAVIS
     Dosage: UNK
     Route: 048
     Dates: start: 200606, end: 2009
  4. PREDONINE /00016201/ [Suspect]
     Dosage: 10 MG, UNKNOWN/D
     Route: 048
     Dates: start: 200902

REACTIONS (4)
  - Prescribed overdose [Unknown]
  - Drug ineffective [Unknown]
  - Myasthenia gravis [Unknown]
  - Pneumonia bacterial [Recovering/Resolving]
